FAERS Safety Report 5488733-X (Version None)
Quarter: 2007Q4

REPORT INFORMATION
  Report Type: 
  Country: None (occurrence: None)
  Receive Date: 20071017
  Receipt Date: 20071005
  Transmission Date: 20080405
  Serious: Yes (Other)
  Sender: FDA-Public Use
  Company Number: US-PFIZER INC-2007069267

PATIENT
  Sex: Female
  Weight: 57.2 kg

DRUGS (18)
  1. LYRICA [Suspect]
     Indication: PAIN IN EXTREMITY
     Dates: start: 20070701, end: 20070814
  2. PLAVIX [Concomitant]
  3. PEPCID [Concomitant]
  4. PYRIDIUM [Concomitant]
  5. LOMOTIL [Concomitant]
  6. DEMEROL [Concomitant]
  7. TYLENOL EXTRA-STRENGTH [Concomitant]
  8. LOPRESSOR [Concomitant]
  9. FLORINEF [Concomitant]
  10. LIPITOR [Concomitant]
  11. COMPAZINE [Concomitant]
  12. MULTI-VITAMINS [Concomitant]
  13. VITAMIN E [Concomitant]
  14. ASCORBIC ACID [Concomitant]
  15. VITAMIN B-12 [Concomitant]
  16. VITAMIN A [Concomitant]
  17. VITAMIN D [Concomitant]
  18. FOLIC ACID [Concomitant]

REACTIONS (2)
  - COMMUNICATION DISORDER [None]
  - HALLUCINATION [None]
